FAERS Safety Report 19078372 (Version 1)
Quarter: 2021Q1

REPORT INFORMATION
  Report Type: Spontaneous
  Country: US (occurrence: US)
  Receive Date: 20210331
  Receipt Date: 20210331
  Transmission Date: 20210420
  Serious: Yes (Death, Hospitalization, Other)
  Sender: FDA-Public Use
  Company Number: US-CIPLA LTD.-2021US02351

PATIENT

DRUGS (16)
  1. LAMIVUDINE. [Suspect]
     Active Substance: LAMIVUDINE
     Indication: HIV INFECTION
     Dosage: UNK
     Route: 065
  2. ATAZANAVIR + RITONAVIR [Suspect]
     Active Substance: ATAZANAVIR\RITONAVIR
     Indication: HEPATITIS B
  3. FOSAMPRENAVIR;RITONAVIR [Suspect]
     Active Substance: FOSAMPRENAVIR\RITONAVIR
     Indication: HEPATITIS B
  4. EMTRICITABINE [Suspect]
     Active Substance: EMTRICITABINE
     Indication: HIV INFECTION
     Dosage: UNK
     Route: 065
  5. ATAZANAVIR + RITONAVIR [Suspect]
     Active Substance: ATAZANAVIR\RITONAVIR
     Indication: HIV INFECTION
     Dosage: UNK
     Route: 065
  6. ADEFOVIR [Suspect]
     Active Substance: ADEFOVIR
     Indication: HEPATITIS B
  7. TELBIVUDINE [Suspect]
     Active Substance: TELBIVUDINE
     Indication: HEPATITIS B
  8. ABACAVIR. [Suspect]
     Active Substance: ABACAVIR
     Indication: HEPATITIS B
  9. EMTRICITABINE;TENOFOVIR [Suspect]
     Active Substance: EMTRICITABINE\TENOFOVIR
     Indication: HIV INFECTION
     Dosage: UNK
     Route: 065
  10. LAMIVUDINE. [Suspect]
     Active Substance: LAMIVUDINE
     Indication: HEPATITIS B
  11. EMTRICITABINE;TENOFOVIR [Suspect]
     Active Substance: EMTRICITABINE\TENOFOVIR
     Indication: HEPATITIS B
  12. ABACAVIR. [Suspect]
     Active Substance: ABACAVIR
     Indication: HIV INFECTION
     Dosage: UNK
     Route: 065
  13. ADEFOVIR [Suspect]
     Active Substance: ADEFOVIR
     Indication: HIV INFECTION
     Dosage: UNK
     Route: 065
  14. FOSAMPRENAVIR;RITONAVIR [Suspect]
     Active Substance: FOSAMPRENAVIR\RITONAVIR
     Indication: HIV INFECTION
     Dosage: UNK
     Route: 065
  15. TELBIVUDINE [Suspect]
     Active Substance: TELBIVUDINE
     Indication: HIV INFECTION
     Dosage: UNK
     Route: 065
  16. EMTRICITABINE [Suspect]
     Active Substance: EMTRICITABINE
     Indication: HEPATITIS B

REACTIONS (10)
  - Thrombocytopenia [Unknown]
  - Hepatic cirrhosis [Unknown]
  - Hepatic necrosis [Unknown]
  - Hepatotoxicity [Unknown]
  - Acute hepatic failure [Fatal]
  - Renal failure [Unknown]
  - Hepatic encephalopathy [Unknown]
  - Coagulopathy [Unknown]
  - Haematemesis [Unknown]
  - General physical health deterioration [Unknown]
